FAERS Safety Report 7003462-9 (Version None)
Quarter: 2010Q3

REPORT INFORMATION
  Report Type: 
  Country: None (occurrence: None)
  Receive Date: 20100920
  Receipt Date: 20100917
  Transmission Date: 20110219
  Serious: No
  Sender: FDA-Public Use
  Company Number: US-PFIZER INC-2010087023

PATIENT
  Sex: Male
  Weight: 44 kg

DRUGS (1)
  1. GENOTROPIN [Suspect]
     Indication: GROWTH HORMONE DEFICIENCY
     Dosage: 1.9 MG, UNK
     Route: 058
     Dates: start: 20100201

REACTIONS (1)
  - REACTION TO PRESERVATIVES [None]
